FAERS Safety Report 16154383 (Version 3)
Quarter: 2019Q2

REPORT INFORMATION
  Report Type: Spontaneous
  Country: US (occurrence: US)
  Receive Date: 20190403
  Receipt Date: 20190629
  Transmission Date: 20190711
  Serious: No
  Sender: FDA-Public Use
  Company Number: US-TEVA-2019-US-1027401

PATIENT
  Sex: Male

DRUGS (4)
  1. CLONAZEPAM ACTAVIS [Suspect]
     Active Substance: CLONAZEPAM
     Indication: PANIC ATTACK
     Route: 065
     Dates: start: 20190226
  2. CLONAZEPAM MYLAN [Suspect]
     Active Substance: CLONAZEPAM
     Indication: ANXIETY
     Route: 065
     Dates: start: 20190120
  3. CLONAZEPAM ACTAVIS [Suspect]
     Active Substance: CLONAZEPAM
     Indication: ANXIETY
     Route: 065
     Dates: start: 20190121
  4. CLONAZEPAM MYLAN [Suspect]
     Active Substance: CLONAZEPAM
     Indication: PANIC ATTACK
     Route: 065
     Dates: start: 20190226

REACTIONS (16)
  - Discomfort [Recovering/Resolving]
  - Pain [Recovering/Resolving]
  - Impaired work ability [Recovering/Resolving]
  - Pain in extremity [Recovering/Resolving]
  - Anxiety [Recovering/Resolving]
  - Appetite disorder [Recovering/Resolving]
  - Paraesthesia [Recovering/Resolving]
  - Drug ineffective [Unknown]
  - Hypoaesthesia [Recovering/Resolving]
  - Nausea [Recovering/Resolving]
  - Sleep disorder [Recovering/Resolving]
  - Gait disturbance [Recovering/Resolving]
  - Tremor [Recovering/Resolving]
  - Headache [Recovering/Resolving]
  - Muscle tightness [Recovering/Resolving]
  - Impaired driving ability [Recovering/Resolving]

NARRATIVE: CASE EVENT DATE: 201901
